FAERS Safety Report 16943883 (Version 2)
Quarter: 2020Q1

REPORT INFORMATION
  Report Type: Spontaneous
  Country: NL (occurrence: NL)
  Receive Date: 20191022
  Receipt Date: 20200102
  Transmission Date: 20200409
  Serious: Yes (Hospitalization)
  Sender: FDA-Public Use
  Company Number: NL-TEVA-2019-NL-1124285

PATIENT
  Age: 41 Year
  Sex: Female
  Weight: 57 kg

DRUGS (1)
  1. LISINOPRIL TABLET, 10 MG (MILLIGRAM) [Suspect]
     Active Substance: LISINOPRIL
     Indication: HYPERTENSION
     Dosage: 10 MILLIGRAM DAILY; 1XPERDAY 1 PIECE, 10 MILLLIGRAM
     Route: 065
     Dates: start: 201904, end: 20190417

REACTIONS (2)
  - Vomiting [Recovered/Resolved with Sequelae]
  - Renal impairment [Recovered/Resolved with Sequelae]

NARRATIVE: CASE EVENT DATE: 20190418
